FAERS Safety Report 20289182 (Version 1)
Quarter: 2022Q1

REPORT INFORMATION
  Report Type: Spontaneous
  Country: US (occurrence: US)
  Receive Date: 20220104
  Receipt Date: 20220104
  Transmission Date: 20220423
  Serious: No
  Sender: FDA-Public Use
  Company Number: US-TEVA-2021-US-1988161

PATIENT

DRUGS (1)
  1. DEXTROAMPHET SACCHARAT, AMPHET ASPARTATE, DEXTROAMPHET SULFATE AND AMP [Suspect]
     Active Substance: AMPHETAMINE ASPARTATE\AMPHETAMINE SULFATE\DEXTROAMPHETAMINE SACCHARATE\DEXTROAMPHETAMINE SULFATE
     Route: 065

REACTIONS (8)
  - Drug ineffective [Unknown]
  - Withdrawal syndrome [Recovering/Resolving]
  - Depression [Unknown]
  - Feeling abnormal [Unknown]
  - Disturbance in attention [Unknown]
  - Fatigue [Unknown]
  - Somnolence [Unknown]
  - Product quality issue [Unknown]
